FAERS Safety Report 9294186 (Version 1)
Quarter: 2013Q2

REPORT INFORMATION
  Report Type: Spontaneous
  Country: AU (occurrence: AU)
  Receive Date: 20130516
  Receipt Date: 20130516
  Transmission Date: 20140414
  Serious: Yes (Hospitalization)
  Sender: FDA-Public Use
  Company Number: AU-BAXTER-2013BAX017480

PATIENT
  Age: 39 Year
  Sex: Female

DRUGS (2)
  1. BAXTER 0.9% SODIUM CHLORIDE 450MG_50ML INJECTION BP BAG AHB1306_AHB136 [Suspect]
     Indication: PRODUCT USED FOR UNKNOWN INDICATION
     Route: 042
     Dates: start: 20130508
  2. RITUXIMAB [Suspect]
     Indication: PRODUCT USED FOR UNKNOWN INDICATION
     Dosage: 50 ML/HR
     Route: 042
     Dates: start: 20130508

REACTIONS (5)
  - Chest pain [Recovered/Resolved]
  - Palpitations [Recovered/Resolved]
  - Vomiting [Recovered/Resolved]
  - Chills [Recovered/Resolved]
  - Fatigue [Recovered/Resolved]
